FAERS Safety Report 4408671-0 (Version None)
Quarter: 2004Q3

REPORT INFORMATION
  Report Type: 
  Country: None (occurrence: None)
  Receive Date: 20040723
  Receipt Date: 20040714
  Transmission Date: 20050211
  Serious: Yes (Death)
  Sender: FDA-Public Use
  Company Number: 2002054312

PATIENT
  Age: 64 Year
  Sex: Male

DRUGS (4)
  1. ACCUPRIL [Suspect]
     Indication: HYPERTENSION
     Dosage: 20 MG (1 IN 1 D), ORAL
     Route: 048
     Dates: start: 20010301
  2. DIGOXIN [Concomitant]
  3. PHENPROCOUMON (PHENPROCOUMON) [Concomitant]
  4. PROPATYLNITRATE (PROPATYLNITRATE) [Concomitant]

REACTIONS (2)
  - ACUTE MYOCARDIAL INFARCTION [None]
  - CARDIAC DISORDER [None]
